FAERS Safety Report 5471788-6 (Version None)
Quarter: 2007Q3

REPORT INFORMATION
  Report Type: 
  Country: None (occurrence: None)
  Receive Date: 20070928
  Receipt Date: 20070921
  Transmission Date: 20080115
  Serious: Yes (Other)
  Sender: FDA-Public Use
  Company Number: JP-SANOFI-SYNTHELABO-F01200600332

PATIENT
  Sex: Male
  Weight: 42 kg

DRUGS (3)
  1. LEUCOVORIN CALCIUM [Suspect]
     Route: 042
     Dates: start: 20050926, end: 20050927
  2. FLUOROURACIL [Suspect]
     Dosage: 500MG/BODY=381.7MG/M2 IN BOLUS THEN 750MG/BODY=572.5MG/M2 AS CONTINUOUS INFUSION ON DAYS 1 AND 2
     Route: 042
     Dates: start: 20050926, end: 20050927
  3. OXALIPLATIN [Suspect]
     Indication: COLON CANCER
     Route: 042
     Dates: start: 20050926, end: 20050926

REACTIONS (1)
  - CEREBRAL HAEMORRHAGE [None]
